FAERS Safety Report 9119626 (Version 1)
Quarter: 2013Q1

REPORT INFORMATION
  Report Type: Spontaneous
  Country: DK (occurrence: FR)
  Receive Date: 20130226
  Receipt Date: 20130226
  Transmission Date: 20140127
  Serious: Yes (Hospitalization)
  Sender: FDA-Public Use
  Company Number: FR-FRI-1000042915

PATIENT
  Age: 92 Year
  Sex: Male

DRUGS (3)
  1. ESCITALOPRAM [Suspect]
     Indication: DEPRESSION
     Dosage: 5 MG
     Route: 048
     Dates: start: 20121129
  2. PREVISCAN [Suspect]
     Indication: ATRIAL FIBRILLATION
     Dosage: 1 DF
     Route: 048
     Dates: end: 20121204
  3. PARACETAMOL [Concomitant]
     Indication: PAIN
     Route: 048
     Dates: start: 20121123

REACTIONS (2)
  - International normalised ratio increased [Recovered/Resolved]
  - Drug interaction [Recovered/Resolved]
